FAERS Safety Report 5577715-5 (Version None)
Quarter: 2007Q4

REPORT INFORMATION
  Report Type: 
  Country: None (occurrence: None)
  Receive Date: 20071227
  Receipt Date: 20071217
  Transmission Date: 20080405
  Serious: Yes (Other)
  Sender: FDA-Public Use
  Company Number: 18062

PATIENT
  Sex: 0

DRUGS (4)
  1. BLEOMYCIN [Suspect]
     Indication: DRUG USE FOR UNKNOWN INDICATION
  2. LEUCOVORIN [Suspect]
     Indication: DRUG USE FOR UNKNOWN INDICATION
  3. FLUOROURACIL [Suspect]
     Indication: DRUG USE FOR UNKNOWN INDICATION
  4. OXALIPLATIN [Suspect]
     Indication: DRUG USE FOR UNKNOWN INDICATION

REACTIONS (1)
  - NEUROPATHY [None]
